FAERS Safety Report 7822891-4 (Version None)
Quarter: 2011Q4

REPORT INFORMATION
  Report Type: 
  Country: None (occurrence: None)
  Receive Date: 20111018
  Receipt Date: 20110106
  Transmission Date: 20120403
  Serious: No
  Sender: FDA-Public Use
  Company Number: US-ASTRAZENECA-2011SE01210

PATIENT
  Age: 37 Year
  Sex: Male

DRUGS (1)
  1. SYMBICORT [Suspect]
     Dosage: FREQUENCY: UNKNOWN.
     Route: 055

REACTIONS (1)
  - MALAISE [None]
